FAERS Safety Report 16058675 (Version 1)
Quarter: 2019Q1

REPORT INFORMATION
  Report Type: Spontaneous
  Country: PT (occurrence: PT)
  Receive Date: 20190311
  Receipt Date: 20190311
  Transmission Date: 20190418
  Serious: Yes (Disabling, Other)
  Sender: FDA-Public Use
  Company Number: PT-PFIZER INC-2019001820

PATIENT
  Sex: Female
  Weight: 59 kg

DRUGS (1)
  1. ARTHROTEC [Suspect]
     Active Substance: DICLOFENAC SODIUM\MISOPROSTOL
     Indication: MYALGIA
     Dosage: 50 MG, SINGLE
     Route: 048
     Dates: start: 20181129, end: 20181129

REACTIONS (6)
  - Syncope [Recovered/Resolved]
  - Faeces discoloured [Recovered/Resolved]
  - Uterine spasm [Recovered/Resolved]
  - Diarrhoea [Recovered/Resolved]
  - Abdominal pain [Recovered/Resolved]
  - Menstrual disorder [Recovered/Resolved]

NARRATIVE: CASE EVENT DATE: 20181129
